FAERS Safety Report 9937854 (Version 1)
Quarter: 2014Q1

REPORT INFORMATION
  Report Type: Spontaneous
  Country: US (occurrence: US)
  Receive Date: 20140303
  Receipt Date: 20140303
  Transmission Date: 20141002
  Serious: No
  Sender: FDA-Public Use
  Company Number: US-BIOGENIDEC-2014BI016461

PATIENT
  Age: 40 Year
  Sex: Female

DRUGS (5)
  1. TECFIDERA [Suspect]
     Indication: PRODUCT USED FOR UNKNOWN INDICATION
     Route: 048
  2. PROTONIX [Concomitant]
  3. CELEXA [Concomitant]
  4. VITAMIN B-12 [Concomitant]
  5. CALCIUM + D [Concomitant]

REACTIONS (4)
  - Urticaria [Unknown]
  - Acne [Unknown]
  - Gastrointestinal disorder [Unknown]
  - Rash [Unknown]
